FAERS Safety Report 25486695 (Version 2)
Quarter: 2025Q3

REPORT INFORMATION
  Report Type: Spontaneous
  Country: US (occurrence: US)
  Receive Date: 20250627
  Receipt Date: 20250714
  Transmission Date: 20251021
  Serious: No
  Sender: BOEHRINGER INGELHEIM
  Company Number: US-Komodo Health-a23aa000008QTBRAA4

PATIENT
  Sex: Male

DRUGS (1)
  1. ADALIMUMAB-ADBM [Suspect]
     Active Substance: ADALIMUMAB-ADBM
     Indication: Product used for unknown indication
     Dosage: 40 MG/0.4 ML
     Dates: start: 202506

REACTIONS (2)
  - Injection site injury [Unknown]
  - Needle issue [Unknown]
